FAERS Safety Report 20646218 (Version 3)
Quarter: 2022Q4

REPORT INFORMATION
  Report Type: Spontaneous
  Country: TH (occurrence: TH)
  Receive Date: 20220329
  Receipt Date: 20221006
  Transmission Date: 20230113
  Serious: Yes (Hospitalization, Other)
  Sender: FDA-Public Use
  Company Number: TH-AMGEN-THASP2022051192

PATIENT
  Age: 53 Year
  Sex: Female

DRUGS (3)
  1. MVASI [Suspect]
     Active Substance: BEVACIZUMAB-AWWB
     Indication: Retinal haemorrhage
     Dosage: 100 MILLIGRAM/4ML
  2. MVASI [Suspect]
     Active Substance: BEVACIZUMAB-AWWB
     Dosage: 100 MILLIGRAM/4ML
  3. MVASI [Suspect]
     Active Substance: BEVACIZUMAB-AWWB
     Dosage: 1.25 MILLIGRAM

REACTIONS (6)
  - Endophthalmitis [Unknown]
  - Corneal degeneration [Unknown]
  - Choroidal haemorrhage [Unknown]
  - Eye inflammation [Unknown]
  - Incorrect route of product administration [Unknown]
  - Off label use [Unknown]
